FAERS Safety Report 15271810 (Version 5)
Quarter: 2021Q2

REPORT INFORMATION
  Report Type: Report from Study
  Country: DE (occurrence: DE)
  Receive Date: 20180813
  Receipt Date: 20210518
  Transmission Date: 20210716
  Serious: Yes (Other)
  Sender: FDA-Public Use
  Company Number: PHHY2018DE069028

PATIENT
  Age: 57 Year
  Sex: Female
  Weight: 78 kg

DRUGS (13)
  1. TAFINLAR [Suspect]
     Active Substance: DABRAFENIB MESYLATE
     Indication: MALIGNANT MELANOMA
     Dosage: 150 MG, BID
     Route: 048
     Dates: start: 20180106, end: 20180605
  2. FENTANYL. [Concomitant]
     Active Substance: FENTANYL
     Indication: MALIGNANT MELANOMA
     Dosage: 50 UG, QD
     Route: 061
  3. TAFINLAR [Suspect]
     Active Substance: DABRAFENIB MESYLATE
     Dosage: 150 MG, BID
     Route: 048
     Dates: start: 20180616, end: 20180621
  4. RANITIDINE. [Concomitant]
     Active Substance: RANITIDINE
     Indication: PRODUCT USED FOR UNKNOWN INDICATION
     Dosage: 150 MG, QD
     Route: 048
     Dates: start: 20180529
  5. METOCLOPRAMIDE. [Concomitant]
     Active Substance: METOCLOPRAMIDE
     Indication: MALIGNANT MELANOMA
     Dosage: 10 MG, TID
     Route: 048
  6. TAFINLAR [Suspect]
     Active Substance: DABRAFENIB MESYLATE
     Dosage: 50 MG, BID
     Route: 048
     Dates: start: 20180622, end: 20190125
  7. TRAMETINIB [Suspect]
     Active Substance: TRAMETINIB
     Dosage: 2 MG, QD
     Route: 048
     Dates: start: 20180616, end: 20180621
  8. EFFENTORA [Concomitant]
     Active Substance: FENTANYL CITRATE
     Indication: MALIGNANT MELANOMA
     Dosage: 100 UG, PRN
     Route: 065
     Dates: start: 20180202
  9. TRAMETINIB [Suspect]
     Active Substance: TRAMETINIB
     Indication: MALIGNANT MELANOMA
     Dosage: 2 MG, QD
     Route: 048
     Dates: start: 20180106, end: 20180605
  10. TRAMETINIB [Suspect]
     Active Substance: TRAMETINIB
     Dosage: 1.5 MG, QD
     Route: 048
     Dates: start: 20180622, end: 20190125
  11. DABIGATRAN [Concomitant]
     Active Substance: DABIGATRAN
     Indication: PORTAL VEIN THROMBOSIS
     Dosage: 150 MG, BID
     Route: 048
     Dates: start: 20180105
  12. NIVOLUMAB [Concomitant]
     Active Substance: NIVOLUMAB
     Indication: MALIGNANT MELANOMA
     Dosage: 480 MG, 1X QMO
     Route: 042
     Dates: start: 20190207, end: 20190709
  13. ZOLEDRONIC ACID [Concomitant]
     Active Substance: ZOLEDRONIC ACID
     Indication: MALIGNANT MELANOMA
     Dosage: 4 MG, QMO
     Route: 042
     Dates: start: 20180201

REACTIONS (3)
  - Abdominal pain upper [Not Recovered/Not Resolved]
  - Pancreatic enzymes increased [Recovered/Resolved]
  - Panniculitis [Recovered/Resolved]

NARRATIVE: CASE EVENT DATE: 20180315
